FAERS Safety Report 6608651-0 (Version None)
Quarter: 2010Q1

REPORT INFORMATION
  Report Type: 
  Country: None (occurrence: None)
  Receive Date: 20100226
  Receipt Date: 20100226
  Transmission Date: 20100710
  Serious: No
  Sender: FDA-Public Use
  Company Number: None

PATIENT
  Age: 41 Year
  Sex: Female
  Weight: 63.5036 kg

DRUGS (9)
  1. ZIPRASIDONE HCL [Suspect]
     Dosage: 80MG PO
     Route: 048
  2. LITHIUM [Concomitant]
  3. VICODIN [Concomitant]
  4. ALBUTEROL [Concomitant]
  5. CLONAZEPAM [Concomitant]
  6. NICOTINE [Concomitant]
  7. DOCUSATE [Concomitant]
  8. OLANZAPINE DISSOLV [Concomitant]
  9. LIBRIUM CAS [Concomitant]

REACTIONS (1)
  - AKATHISIA [None]
